FAERS Safety Report 4455186-X (Version None)
Quarter: 2004Q3

REPORT INFORMATION
  Report Type: 
  Country: None (occurrence: None)
  Receive Date: 20040917
  Receipt Date: 20040902
  Transmission Date: 20050211
  Serious: Yes (Death)
  Sender: FDA-Public Use
  Company Number: WAES 0409USA00263

PATIENT
  Sex: Female

DRUGS (4)
  1. COZAAR [Suspect]
     Indication: HYPERTENSION
     Dosage: 25 MG DAILY,50 MG/DAILY
     Route: 048
     Dates: start: 20020612, end: 20021002
  2. COZAAR [Suspect]
     Indication: HYPERTENSION
     Dosage: 25 MG DAILY,50 MG/DAILY
     Route: 048
     Dates: start: 20021003, end: 20031120
  3. NORVASC [Concomitant]
  4. SELECTOL [Concomitant]

REACTIONS (1)
  - VENTRICULAR FIBRILLATION [None]
